FAERS Safety Report 19510282 (Version 1)
Quarter: 2021Q3

REPORT INFORMATION
  Report Type: Spontaneous
  Country: US (occurrence: US)
  Receive Date: 20210709
  Receipt Date: 20210709
  Transmission Date: 20211014
  Serious: No
  Sender: FDA-Public Use
  Company Number: US-GLAXOSMITHKLINE-USCH2021025584

PATIENT
  Sex: Female

DRUGS (2)
  1. ADVIL DUAL ACTION WITH ACETAMINOPHEN [Suspect]
     Active Substance: ACETAMINOPHEN\IBUPROFEN
     Indication: HEADACHE
     Dosage: UNK
  2. EMERGEN?C [Suspect]
     Active Substance: VITAMINS
     Indication: NASOPHARYNGITIS
     Dosage: UNKNOWN

REACTIONS (3)
  - Therapeutic product effect incomplete [Unknown]
  - Product use in unapproved indication [Unknown]
  - Drug ineffective for unapproved indication [Unknown]
